FAERS Safety Report 9022603 (Version 1)
Quarter: 2013Q1

REPORT INFORMATION
  Report Type: Spontaneous
  Country: US (occurrence: US)
  Receive Date: 20130118
  Receipt Date: 20130118
  Transmission Date: 20140127
  Serious: No
  Sender: FDA-Public Use
  Company Number: US-GLAXOSMITHKLINE-A0998093A

PATIENT
  Age: 60 Year
  Sex: Female

DRUGS (10)
  1. PROMACTA [Suspect]
     Dosage: 25MG PER DAY
     Route: 048
  2. PEGASYS [Suspect]
  3. LASIX [Concomitant]
     Route: 048
  4. ONDANSETRON [Concomitant]
     Route: 048
  5. NADOLOL [Concomitant]
     Route: 048
  6. RIBAVIRAN [Concomitant]
     Route: 048
  7. SPIRONOLACTONE [Concomitant]
     Route: 048
  8. POTASSIUM [Concomitant]
     Route: 048
  9. XIFAXAN [Concomitant]
     Route: 048
  10. BACID [Concomitant]
     Route: 048

REACTIONS (2)
  - Platelet count decreased [Unknown]
  - Red blood cell count decreased [Unknown]
